FAERS Safety Report 9521385 (Version 1)
Quarter: 2013Q3

REPORT INFORMATION
  Report Type: Report from Study
  Country: US (occurrence: US)
  Receive Date: 20130913
  Receipt Date: 20130913
  Transmission Date: 20140515
  Serious: Yes (Other)
  Sender: FDA-Public Use
  Company Number: US-ROCHE-1273426

PATIENT
  Age: 58 Year
  Sex: Female
  Weight: 90.8 kg

DRUGS (7)
  1. XOLAIR [Suspect]
     Indication: ASTHMA
     Route: 065
     Dates: start: 20130903
  2. PREDNISONE [Concomitant]
     Indication: ASTHMA
     Dosage: START AT 60MG, 50MG, 40MG,30 MG, 20MG, 10 MG
     Route: 048
     Dates: start: 2012
  3. SYMBICORT [Concomitant]
     Indication: ASTHMA
     Route: 055
  4. SPIRIVA [Concomitant]
     Indication: ASTHMA
     Route: 055
  5. LOSARTAN [Concomitant]
     Indication: BLOOD PRESSURE
     Route: 048
     Dates: start: 201211
  6. DEXILANT [Concomitant]
     Indication: GASTROOESOPHAGEAL REFLUX DISEASE
     Route: 048
     Dates: end: 201211
  7. ZANTAC [Concomitant]
     Indication: GASTROOESOPHAGEAL REFLUX DISEASE
     Route: 065

REACTIONS (3)
  - Anaphylactic reaction [Unknown]
  - Fatigue [Unknown]
  - Upper respiratory tract congestion [Unknown]
